FAERS Safety Report 16776108 (Version 1)
Quarter: 2019Q3

REPORT INFORMATION
  Report Type: Spontaneous
  Country: US (occurrence: US)
  Receive Date: 20190905
  Receipt Date: 20190905
  Transmission Date: 20191005
  Serious: No
  Sender: FDA-Public Use
  Company Number: US-JNJFOC-20190836027

PATIENT
  Age: 64 Year
  Sex: Female
  Weight: 60.84 kg

DRUGS (2)
  1. WOMENS ROGAINE UNSCENTED [Suspect]
     Active Substance: MINOXIDIL
     Indication: ALOPECIA
     Dosage: USED LESS THAN RECOMMENDED DOSE FOR THE FIRST WEEK ONCE DAILY
     Route: 061
     Dates: start: 20190710, end: 201907
  2. WOMENS ROGAINE UNSCENTED [Suspect]
     Active Substance: MINOXIDIL
     Dosage: USED HALF CAP-FULL BEGINNING ABOUT TWO WEEKS AGO FROM THE DATE OF REPORT ONCE DAILY
     Route: 061
     Dates: start: 2019

REACTIONS (2)
  - Underdose [Recovering/Resolving]
  - Breast pain [Recovering/Resolving]

NARRATIVE: CASE EVENT DATE: 20190710
